FAERS Safety Report 10242363 (Version 2)
Quarter: 2014Q2

REPORT INFORMATION
  Report Type: Spontaneous
  Country: US (occurrence: US)
  Receive Date: 20140617
  Receipt Date: 20140617
  Transmission Date: 20141212
  Serious: No
  Sender: FDA-Public Use
  Company Number: US-ASTRAZENECA-2014SE26245

PATIENT
  Age: 895 Month
  Sex: Female
  Weight: 63.5 kg

DRUGS (4)
  1. SYMBICORT [Suspect]
     Indication: CHRONIC OBSTRUCTIVE PULMONARY DISEASE
     Dosage: 160/4.5, 2 PUFFS BID
     Route: 055
     Dates: start: 20140321, end: 20140411
  2. SYMBICORT [Suspect]
     Indication: BRONCHITIS
     Dosage: 160/4.5, 2 PUFFS BID
     Route: 055
     Dates: start: 20140321, end: 20140411
  3. MANY OTHER MEDICATIONS FOR HER HEART [Concomitant]
     Indication: CARDIAC DISORDER
  4. MANY OTHER MEDICATIONS FOR HER BREATHING [Concomitant]
     Indication: RESPIRATORY DISORDER

REACTIONS (10)
  - Bronchitis [Unknown]
  - Malaise [Unknown]
  - Pulmonary congestion [Unknown]
  - Emphysema [Unknown]
  - Nasopharyngitis [Unknown]
  - Dyspnoea [Unknown]
  - Fatigue [Unknown]
  - Incorrect product storage [Unknown]
  - Drug dose omission [Unknown]
  - Intentional product misuse [Unknown]
